FAERS Safety Report 5912951-7 (Version None)
Quarter: 2008Q4

REPORT INFORMATION
  Report Type: 
  Country: None (occurrence: None)
  Receive Date: 20081008
  Receipt Date: 20080926
  Transmission Date: 20090506
  Serious: Yes (Other)
  Sender: FDA-Public Use
  Company Number: BR-PFIZER INC-2008082132

PATIENT
  Sex: Female
  Weight: 79 kg

DRUGS (4)
  1. FRONTAL [Suspect]
     Indication: NERVOUSNESS
     Route: 048
     Dates: start: 20080916
  2. LOSARTAN [Concomitant]
     Route: 048
     Dates: start: 20080916
  3. TEGRETOL [Concomitant]
     Route: 048
     Dates: start: 20080301
  4. ATENOLOL W/CHLORTALIDONE [Concomitant]
     Route: 048

REACTIONS (5)
  - BLOOD PRESSURE INCREASED [None]
  - EYE PAIN [None]
  - HEADACHE [None]
  - OCULAR HYPERAEMIA [None]
  - SLEEP DISORDER [None]
